FAERS Safety Report 5742488-X (Version None)
Quarter: 2008Q2

REPORT INFORMATION
  Report Type: 
  Country: None (occurrence: None)
  Receive Date: 20080515
  Receipt Date: 20080506
  Transmission Date: 20081010
  Serious: Yes (Hospitalization, Disabling, Other)
  Sender: FDA-Public Use
  Company Number: 2007SP018230

PATIENT
  Age: 72 Year
  Sex: Male
  Weight: 66.3 kg

DRUGS (2)
  1. TEMOZOLOMIDE [Suspect]
     Indication: MALIGNANT MELANOMA
     Dosage: 280 MG
     Dates: start: 20070502, end: 20070905
  2. RIFATEX [Concomitant]

REACTIONS (6)
  - ANOREXIA [None]
  - DYSPNOEA [None]
  - HEPATIC FAILURE [None]
  - MALAISE [None]
  - NAUSEA [None]
  - WEIGHT DECREASED [None]
